FAERS Safety Report 23955629 (Version 8)
Quarter: 2025Q4

REPORT INFORMATION
  Report Type: Spontaneous
  Country: US (occurrence: US)
  Receive Date: 20240610
  Receipt Date: 20251004
  Transmission Date: 20260117
  Serious: Yes (Disabling, Other)
  Sender: AMGEN
  Company Number: US-AMGEN-USASP2024109885

PATIENT
  Age: 69 Year
  Sex: Male
  Weight: 73.9 kg

DRUGS (64)
  1. TEPEZZA [Suspect]
     Active Substance: TEPROTUMUMAB-TRBW
     Indication: Graves^ disease
     Dosage: 770 MILLIGRAM (FIRST INFUSION)
     Route: 042
     Dates: start: 20201202
  2. TEPEZZA [Suspect]
     Active Substance: TEPROTUMUMAB-TRBW
     Indication: Endocrine ophthalmopathy
     Dosage: 1500 MILLIGRAM, Q3WK (SECOND INFUSION)
     Route: 042
     Dates: start: 20201223
  3. TEPEZZA [Suspect]
     Active Substance: TEPROTUMUMAB-TRBW
     Dosage: 1450 MILLIGRAM, Q3WK (SEVENTH INFUSION)
     Route: 042
     Dates: start: 20210715
  4. TEPEZZA [Suspect]
     Active Substance: TEPROTUMUMAB-TRBW
     Dosage: 1400 MILLIGRAM, Q3WK (EIGHTH INFUSION)
     Route: 042
     Dates: start: 20210805
  5. TEPEZZA [Suspect]
     Active Substance: TEPROTUMUMAB-TRBW
     Dosage: 760 MILLIGRAM, Q3WK (FIRST INFUSION)
     Route: 042
     Dates: start: 20221003, end: 20221003
  6. TEPEZZA [Suspect]
     Active Substance: TEPROTUMUMAB-TRBW
     Dosage: 1480 MILLIGRAM, Q3WK (SECOND INFUSION)
     Route: 042
     Dates: start: 20221024
  7. TEPEZZA [Suspect]
     Active Substance: TEPROTUMUMAB-TRBW
     Dosage: 1465 MILLIGRAM, Q3WK (THIRD INFUSION)
     Route: 042
     Dates: start: 20221114, end: 20221114
  8. TEPEZZA [Suspect]
     Active Substance: TEPROTUMUMAB-TRBW
     Dosage: 1455 MILLIGRAM, Q3WK (FOURTH INFUSION)
     Route: 042
     Dates: start: 20221205
  9. TEPEZZA [Suspect]
     Active Substance: TEPROTUMUMAB-TRBW
     Dosage: 1455 MILLIGRAM, Q3WK (FIFTH INFUSION)
     Route: 042
     Dates: start: 20221227, end: 20221227
  10. TEPEZZA [Suspect]
     Active Substance: TEPROTUMUMAB-TRBW
     Dosage: 1480 MILLIGRAM, Q3WK, (SIXTH INFUSION)
     Route: 042
     Dates: start: 20230116
  11. TEPEZZA [Suspect]
     Active Substance: TEPROTUMUMAB-TRBW
     Dosage: 1480 MILLIGRAM, Q3WK, (SEVENTH INFUSION)
     Route: 042
     Dates: start: 20230206, end: 20230206
  12. TEPEZZA [Suspect]
     Active Substance: TEPROTUMUMAB-TRBW
     Dosage: 1460 MILLIGRAM, Q3WK, (EIGHT INFUSION)
     Route: 042
     Dates: start: 20230227
  13. PREDNISONE [Suspect]
     Active Substance: PREDNISONE
     Indication: Graves^ disease
     Dosage: 10 MILLIGRAM, QD
     Route: 048
     Dates: start: 201804
  14. PREDNISONE [Suspect]
     Active Substance: PREDNISONE
     Dosage: 5 MILLIGRAM, QD
     Route: 048
  15. PREDNISONE [Suspect]
     Active Substance: PREDNISONE
     Dosage: 5 MILLIGRAM, QD (EVERY OTHER DAY)
     Route: 048
  16. PREDNISONE [Suspect]
     Active Substance: PREDNISONE
     Dosage: 10 MILLIGRAM, QD
     Route: 065
     Dates: end: 202104
  17. PREDNISONE [Suspect]
     Active Substance: PREDNISONE
     Dosage: UNK
     Route: 065
     Dates: end: 202210
  18. PREDNISONE [Suspect]
     Active Substance: PREDNISONE
     Dosage: UNK (30 MG QD 3 DAYS, 20 MG QD 5 DAYS, 10 MG 2 WEEKS)
     Route: 048
  19. PREDNISONE [Suspect]
     Active Substance: PREDNISONE
     Dosage: 15 MILLIGRAM (FOR 3 DAYS)
     Route: 048
  20. PREDNISONE [Suspect]
     Active Substance: PREDNISONE
     Dosage: 20 MILLIGRAM
     Route: 048
  21. PREDNISONE [Suspect]
     Active Substance: PREDNISONE
     Dosage: 60 MILLIGRAM
     Route: 048
  22. PREDNISONE [Suspect]
     Active Substance: PREDNISONE
     Dosage: UNK, QD (STRENGTH 20 MG) (TAKE 3 TABLET)
     Route: 048
  23. PREDNISONE [Suspect]
     Active Substance: PREDNISONE
     Dosage: UNK (STRENGTH 10 MG) (TAKE 3 TABLE 2 DAYS, 2 TAB 5 DAYS, 1 TAB 2 WEEKS)
     Route: 048
  24. PREDNISONE [Suspect]
     Active Substance: PREDNISONE
     Dosage: UNK (STRENGTH 5 MG)(2 TAB QD FOR 1 WWEK, 1 TAB QD FOR 4 WEEKS)
     Route: 048
  25. LEVOTHYROXINE [Concomitant]
     Active Substance: LEVOTHYROXINE
     Dosage: 100 MILLIGRAM
     Route: 065
  26. FAMOTIDINE [Concomitant]
     Active Substance: FAMOTIDINE
     Dosage: UNK
     Route: 065
  27. SODIUM CHLORIDE [Concomitant]
     Active Substance: SODIUM CHLORIDE
     Dosage: 10 MILLILITER
     Route: 065
  28. WATER [Concomitant]
     Active Substance: WATER
     Dosage: UNK
     Route: 065
  29. GUAIFENESIN [Concomitant]
     Active Substance: GUAIFENESIN
     Dosage: UNK UNK, QID
     Route: 048
  30. SILVER SULFADIAZINE [Concomitant]
     Active Substance: SILVER SULFADIAZINE
     Dosage: UNK UNK, QD
     Route: 061
  31. LEVOTHYROXINE SODIUM [Concomitant]
     Active Substance: LEVOTHYROXINE SODIUM
     Indication: Hypothyroidism
     Dosage: 75 MICROGRAM, QD
     Route: 048
  32. LEVOTHYROXINE SODIUM [Concomitant]
     Active Substance: LEVOTHYROXINE SODIUM
     Dosage: 100 MICROGRAM, QD (ON AN EMPTY STOMACH IN THE MORNING)
     Route: 048
  33. REFRESH OPTIVE [Concomitant]
     Active Substance: CARBOXYMETHYLCELLULOSE SODIUM\GLYCERIN
     Dosage: UNK UNK, TID
     Route: 047
  34. MAXITROL [Concomitant]
     Active Substance: DEXAMETHASONE\NEOMYCIN SULFATE\POLYMYXIN B SULFATE
     Dosage: UNK UNK, TID
     Route: 047
  35. LUMIGAN [Concomitant]
     Active Substance: BIMATOPROST
     Dosage: UNK
     Route: 065
  36. PRED FORTE [Concomitant]
     Active Substance: PREDNISOLONE ACETATE
     Dosage: UNK
     Route: 047
  37. LANOLIN\PARAFFIN [Concomitant]
     Active Substance: LANOLIN\PARAFFIN
  38. TETANUS TOXOID, REDUCED DIPHTHERIA TOXOID AND ACELLULAR PERTUSSIS VACC [Concomitant]
     Active Substance: TETANUS TOXOID, REDUCED DIPHTHERIA TOXOID AND ACELLULAR PERTUSSIS VACCINE ADSORBED, TDAP
     Dosage: 0.50 MILLILITER
     Route: 030
     Dates: start: 20210212
  39. Zoster [Concomitant]
     Dosage: UNK (1.00EA)
     Route: 030
     Dates: start: 20210212
  40. VITAMIN D [Concomitant]
     Active Substance: VITAMIN D NOS
  41. Artificial tears [Concomitant]
     Dosage: UNK
     Route: 065
  42. IBUPROFEN [Concomitant]
     Active Substance: IBUPROFEN
     Dosage: UNK
     Route: 065
     Dates: start: 20211008
  43. PREDNISOLONE ACETATE [Concomitant]
     Active Substance: PREDNISOLONE ACETATE
     Dosage: UNK (1 PERCENT OPH. SUSP)
     Route: 065
  44. MOXIFLOXACIN [Concomitant]
     Active Substance: MOXIFLOXACIN
     Dosage: 0.5 PERCENT
     Route: 065
  45. BROMFENAC [Concomitant]
     Active Substance: BROMFENAC
     Dosage: 0.075 PERCENT, QD
     Route: 047
  46. CHONDROITIN SULFATE SODIUM NOS\HYALURONATE SODIUM [Concomitant]
     Active Substance: CHONDROITIN SULFATE SODIUM NOS\HYALURONATE SODIUM
     Dosage: UNK
  47. MIOSTAT [Concomitant]
     Active Substance: CARBACHOL
     Dosage: 0.01 PERCENT
  48. OMIDRIA [Concomitant]
     Active Substance: KETOROLAC\PHENYLEPHRINE
     Dosage: 4 MILLILITER
  49. LIDOCAINE [Concomitant]
     Active Substance: LIDOCAINE
     Dosage: 1 PERCENT
  50. Proparacaina [Concomitant]
     Dosage: 0.5 PERCENT
     Route: 047
  51. VIGAMOX [Concomitant]
     Active Substance: MOXIFLOXACIN HYDROCHLORIDE
     Dosage: 0.5 PERCENT
     Route: 047
  52. GUAIFENESIN AC [Concomitant]
     Active Substance: CODEINE PHOSPHATE\GUAIFENESIN
     Dosage: UNK UNK, Q4H (10/100 MG SYRUP 1-2TSP)
     Route: 048
  53. BETAMETHASONE\CLOTRIMAZOLE [Concomitant]
     Active Substance: BETAMETHASONE\CLOTRIMAZOLE
     Dosage: UNK UNK, BID (1-0.05 %CREAM 1 APPLICATION)
     Route: 061
  54. CICLOPIROX [Concomitant]
     Active Substance: CICLOPIROX
     Dosage: UNK UNK, QD (8 % SOLUTION 1 APPLICATION TO NAIL AND SURROUDING SKIN)
  55. COMBIGAN [Concomitant]
     Active Substance: BRIMONIDINE TARTRATE\TIMOLOL MALEATE
     Dosage: UNK UNK, QD
     Route: 047
  56. PROLENSA [Concomitant]
     Active Substance: BROMFENAC SODIUM
     Dosage: UNK UNK, QD
     Route: 047
  57. PREDNISOLONE [Concomitant]
     Active Substance: PREDNISOLONE
     Dosage: UNK
     Route: 065
  58. TYLENOL [Concomitant]
     Active Substance: ACETAMINOPHEN
     Dosage: UNK
     Route: 065
     Dates: start: 20220722
  59. CIPROFLOXACIN [Concomitant]
     Active Substance: CIPROFLOXACIN
     Dosage: 500 MILLIGRAM, BID
     Route: 065
  60. INFLUENZA VIRUS VACCINE [Concomitant]
     Active Substance: INFLUENZA VIRUS VACCINE
     Dosage: 0.50 MILLILITER
     Route: 030
     Dates: start: 20220926
  61. REFRESH CLASSIC [Concomitant]
     Active Substance: POLYVINYL ALCOHOL\POVIDONE
     Dosage: UNK UNK, BID
     Route: 047
  62. CIPROFLOXACIN HYDROCHLORIDE [Concomitant]
     Active Substance: CIPROFLOXACIN HYDROCHLORIDE
     Dosage: 500 MILLIGRAM, BID
     Route: 048
     Dates: start: 20220721
  63. LOTEMAX [Concomitant]
     Active Substance: LOTEPREDNOL ETABONATE
     Dosage: 0.5 PERCENT, TID
     Route: 047
  64. COVID-19 vaccine [Concomitant]
     Dosage: UNK
     Route: 065

REACTIONS (36)
  - Endocrine ophthalmopathy [Unknown]
  - Graves^ disease [Unknown]
  - Deafness neurosensory [Not Recovered/Not Resolved]
  - Physical disability [Unknown]
  - Hypothyroidism [Unknown]
  - Non-Hodgkin^s lymphoma [Unknown]
  - Seizure [Unknown]
  - Adrenal insufficiency [Unknown]
  - Pain [Unknown]
  - Emotional distress [Unknown]
  - Anxiety [Unknown]
  - Impaired quality of life [Unknown]
  - Discomfort [Unknown]
  - Gastrooesophageal reflux disease [Unknown]
  - Blood pressure increased [Unknown]
  - Product information content complaint [Unknown]
  - Off label use [Unknown]
  - Therapy interrupted [Unknown]
  - Haemoglobin decreased [Unknown]
  - Haematocrit decreased [Unknown]
  - Mean cell volume increased [Unknown]
  - Neutrophil count increased [Unknown]
  - Lymphocyte count increased [Unknown]
  - Bilirubin urine present [Unknown]
  - Glomerular filtration rate decreased [Unknown]
  - Weight decreased [Unknown]
  - Blood glucose increased [Unknown]
  - Dry skin [Unknown]
  - Tinnitus [Not Recovered/Not Resolved]
  - Drug ineffective [Unknown]
  - Gastritis [Unknown]
  - Varicose vein [Unknown]
  - Cardiac disorder [Unknown]
  - SARS-CoV-2 test positive [Unknown]
  - Procedural nausea [Unknown]
  - Procedural headache [Unknown]

NARRATIVE: CASE EVENT DATE: 20210101
